FAERS Safety Report 8622931-9 (Version None)
Quarter: 2012Q3

REPORT INFORMATION
  Report Type: 
  Country: None (occurrence: None)
  Receive Date: 20120827
  Receipt Date: 20120824
  Transmission Date: 20120928
  Serious: Yes (Other)
  Sender: FDA-Public Use
  Company Number: PHHY2012AU073080

PATIENT
  Sex: Male

DRUGS (6)
  1. BENZTROPINE MESYLATE [Concomitant]
     Dosage: 2 MG, NOCTE
  2. HALOPERIDOL [Concomitant]
     Dosage: 5 MG, MANE
  3. CLOZARIL [Suspect]
     Indication: SCHIZOPHRENIA
     Dosage: 150 MG MANE AND 325 MG NOCTE
     Route: 048
     Dates: start: 20040101
  4. CITALOPRAM HYDROBROMIDE [Concomitant]
     Dosage: 20 MG, MANE
  5. VALIUM [Concomitant]
     Dosage: 5 MG, PRN (AS REQUIRED) (RARELY USES)
  6. CRESTOR [Concomitant]

REACTIONS (8)
  - NEUTROPHIL COUNT INCREASED [None]
  - DILATATION VENTRICULAR [None]
  - ATRIAL SEPTAL DEFECT [None]
  - VENTRICULAR EXTRASYSTOLES [None]
  - LEFT ATRIAL DILATATION [None]
  - BLOOD GLUCOSE INCREASED [None]
  - SINUS TACHYCARDIA [None]
  - EJECTION FRACTION DECREASED [None]
